FAERS Safety Report 17299520 (Version 1)
Quarter: 2020Q1

REPORT INFORMATION
  Report Type: Spontaneous
  Country: US (occurrence: US)
  Receive Date: 20200121
  Receipt Date: 20200121
  Transmission Date: 20200409
  Serious: Yes (Life-Threatening)
  Sender: FDA-Public Use
  Company Number: None

PATIENT
  Age: 35 Year
  Sex: Female
  Weight: 94.5 kg

DRUGS (15)
  1. ZOLOFT [Concomitant]
     Active Substance: SERTRALINE HYDROCHLORIDE
  2. CARBATROL [Concomitant]
     Active Substance: CARBAMAZEPINE
  3. SONATA [Concomitant]
     Active Substance: ZALEPLON
  4. IMODIUM [Concomitant]
     Active Substance: LOPERAMIDE HYDROCHLORIDE
  5. MUCINEX [Concomitant]
     Active Substance: GUAIFENESIN
  6. LATUDA [Suspect]
     Active Substance: LURASIDONE HYDROCHLORIDE
     Indication: BIPOLAR I DISORDER
     Dosage: ?          QUANTITY:1 TABLET(S);?
     Route: 048
     Dates: start: 20160529, end: 20170529
  7. SINGULAIR [Concomitant]
     Active Substance: MONTELUKAST SODIUM
  8. XANAX [Concomitant]
     Active Substance: ALPRAZOLAM
  9. FLONASE [Concomitant]
     Active Substance: FLUTICASONE PROPIONATE
  10. SEROQUEL [Concomitant]
     Active Substance: QUETIAPINE FUMARATE
  11. PRORANOLOL [Concomitant]
  12. KLONOPIN [Concomitant]
     Active Substance: CLONAZEPAM
  13. LAMOTIL [Concomitant]
  14. TYLENOL [Concomitant]
     Active Substance: ACETAMINOPHEN
  15. ALBUTEROL. [Concomitant]
     Active Substance: ALBUTEROL

REACTIONS (3)
  - Akathisia [None]
  - Agitation [None]
  - Suicidal ideation [None]

NARRATIVE: CASE EVENT DATE: 20160801
